FAERS Safety Report 4950429-8 (Version None)
Quarter: 2006Q1

REPORT INFORMATION
  Report Type: 
  Country: None (occurrence: None)
  Receive Date: 20060322
  Receipt Date: 20060221
  Transmission Date: 20060701
  Serious: Yes (Life-Threatening, Hospitalization)
  Sender: FDA-Public Use
  Company Number: DE-JNJFOC-20060206241

PATIENT
  Sex: Male
  Weight: 93 kg

DRUGS (7)
  1. RISPERDAL [Suspect]
     Route: 048
  2. VALPROATE SODIUM [Suspect]
     Indication: PROPHYLAXIS
     Route: 048
  3. CIATYL [Concomitant]
     Route: 048
  4. CIATYL [Concomitant]
     Route: 030
  5. DIAZEPAM [Concomitant]
     Indication: RESTLESSNESS
     Route: 048
  6. AKINETON [Concomitant]
     Indication: EXTRAPYRAMIDAL DISORDER
     Route: 048
  7. PANTOZOL [Concomitant]
     Route: 048

REACTIONS (4)
  - HEPATIC ENZYME INCREASED [None]
  - HEPATIC STEATOSIS [None]
  - HEPATITIS [None]
  - JAUNDICE [None]
